FAERS Safety Report 14797462 (Version 2)
Quarter: 2018Q2

REPORT INFORMATION
  Report Type: Spontaneous
  Country: US (occurrence: US)
  Receive Date: 20180424
  Receipt Date: 20180425
  Transmission Date: 20180711
  Serious: Yes (Hospitalization)
  Sender: FDA-Public Use
  Company Number: US-JNJFOC-20180416217

PATIENT
  Sex: Female

DRUGS (1)
  1. ACETAMINOPHEN. [Suspect]
     Active Substance: ACETAMINOPHEN
     Indication: PRODUCT USED FOR UNKNOWN INDICATION
     Dosage: 50 TABLETS OF 500 MG; NOT EXTENDED-RELEASE, PRESENTED 27 TIMES, ALL PRESENTATIONS WERE VERY SIMILAR
     Route: 048

REACTIONS (2)
  - International normalised ratio increased [Unknown]
  - Intentional overdose [Unknown]
